FAERS Safety Report 7898918-0 (Version None)
Quarter: 2011Q4

REPORT INFORMATION
  Report Type: 
  Country: None (occurrence: None)
  Receive Date: 20111107
  Receipt Date: 20111028
  Transmission Date: 20120403
  Serious: Yes (Hospitalization, Other)
  Sender: FDA-Public Use
  Company Number: US-ABBOTT-11P-163-0861578-00

PATIENT
  Sex: Female
  Weight: 54.48 kg

DRUGS (12)
  1. VITAMIN D [Concomitant]
     Indication: VITAMIN D DECREASED
  2. CELEBREX [Concomitant]
     Indication: ANKYLOSING SPONDYLITIS
  3. ZANAFLEX [Concomitant]
     Indication: ANKYLOSING SPONDYLITIS
  4. COUMADIN [Concomitant]
     Indication: THROMBOSIS
  5. VALIUM [Concomitant]
     Indication: DEPRESSION
  6. PRILOSEC [Concomitant]
     Indication: GASTROOESOPHAGEAL REFLUX DISEASE
  7. ZOFRAN [Concomitant]
     Indication: NAUSEA
  8. MIDODRINE HYDROCHLORIDE [Concomitant]
     Indication: HYPOTENSION
  9. HUMIRA [Suspect]
     Indication: ANKYLOSING SPONDYLITIS
     Dates: start: 20110401
  10. VALIUM [Concomitant]
     Indication: ANXIETY
  11. CALCIUM [Concomitant]
     Indication: BLOOD CALCIUM DECREASED
  12. ASPIRIN [Concomitant]
     Indication: THROMBOSIS

REACTIONS (16)
  - BLOOD PRESSURE INCREASED [None]
  - BILE OUTPUT ABNORMAL [None]
  - HAEMATOCHEZIA [None]
  - INFLAMMATORY BOWEL DISEASE [None]
  - INTRACARDIAC THROMBUS [None]
  - CROHN'S DISEASE [None]
  - PAIN IN EXTREMITY [None]
  - CHEST PAIN [None]
  - DIARRHOEA [None]
  - WEIGHT DECREASED [None]
  - GASTRIC DISORDER [None]
  - DRUG EFFECT DECREASED [None]
  - ASTHENIA [None]
  - HEART RATE INCREASED [None]
  - ABDOMINAL DISCOMFORT [None]
  - PAIN [None]
